FAERS Safety Report 4276511-9 (Version None)
Quarter: 2004Q1

REPORT INFORMATION
  Report Type: 
  Country: None (occurrence: None)
  Receive Date: 20040120
  Receipt Date: 20040106
  Transmission Date: 20041129
  Serious: Yes (Other)
  Sender: FDA-Public Use
  Company Number: 2003040620

PATIENT
  Sex: Male

DRUGS (12)
  1. LIPITOR [Suspect]
     Indication: HYPERLIPIDAEMIA
     Dosage: 20 MG (DAILY), ORAL
     Route: 048
     Dates: start: 20020301, end: 20020101
  2. NORVASC [Suspect]
     Indication: HYPERTENSION
     Dosage: 5 MG (DAILY), ORAL
     Route: 048
     Dates: start: 20020531, end: 20020101
  3. DILTIAZEM HYDROCHLORIDE [Concomitant]
  4. FELODIPINE [Concomitant]
  5. CEFACLOR [Concomitant]
  6. FLUTICASONE PROPIONATE [Concomitant]
  7. QUINAPRIL HCL [Concomitant]
  8. GARLIC (GARLIC) [Concomitant]
  9. FISH OIL (FISH OIL) [Concomitant]
  10. METAMUCIL-2 [Concomitant]
  11. HYDROCHLOROTHIAZIDE [Concomitant]
  12. UBIDECARENONE (UBIDECARENONE) [Concomitant]

REACTIONS (42)
  - ABDOMINAL PAIN [None]
  - APHASIA [None]
  - BULBAR PALSY [None]
  - CHEST PAIN [None]
  - CONSTIPATION [None]
  - CRANIAL NERVE DISORDER [None]
  - CYTOMEGALOVIRUS INFECTION [None]
  - DIARRHOEA [None]
  - DYSARTHRIA [None]
  - DYSPEPSIA [None]
  - DYSPHAGIA [None]
  - DYSPNOEA [None]
  - EPSTEIN-BARR VIRUS INFECTION [None]
  - FACIAL PAIN [None]
  - FACIAL PARESIS [None]
  - GASTRITIS [None]
  - GASTROOESOPHAGEAL REFLUX DISEASE [None]
  - HAEMORRHOIDS [None]
  - HELICOBACTER INFECTION [None]
  - HIATUS HERNIA [None]
  - HOARSENESS [None]
  - HYPOAESTHESIA [None]
  - HYPOREFLEXIA [None]
  - LARYNGOSCOPY ABNORMAL [None]
  - LYME DISEASE [None]
  - MUSCLE ATROPHY [None]
  - MUSCLE CONTRACTIONS INVOLUNTARY [None]
  - MUSCLE CRAMP [None]
  - MUSCLE TWITCHING [None]
  - NAUSEA [None]
  - OEDEMA [None]
  - ORTHOPNOEA [None]
  - PAIN [None]
  - PALPITATIONS [None]
  - RECTAL HAEMORRHAGE [None]
  - SINUSITIS [None]
  - SPEECH DISORDER [None]
  - SPINAL OSTEOARTHRITIS [None]
  - TONGUE ATROPHY [None]
  - TONGUE DISORDER [None]
  - TONGUE PARALYSIS [None]
  - VOMITING [None]
